FAERS Safety Report 6311680-8 (Version None)
Quarter: 2009Q3

REPORT INFORMATION
  Report Type: 
  Country: None (occurrence: None)
  Receive Date: 20090817
  Receipt Date: 20090817
  Transmission Date: 20100115
  Serious: Yes (Hospitalization)
  Sender: FDA-Public Use
  Company Number: JP-ROCHE-648371

PATIENT
  Age: 43 Year
  Sex: Male

DRUGS (4)
  1. CELLCEPT [Suspect]
     Route: 048
  2. SIMULECT [Concomitant]
     Route: 042
  3. CYCLOSPORINE [Concomitant]
     Route: 048
  4. MEDROL [Concomitant]
     Route: 048

REACTIONS (4)
  - DISSEMINATED INTRAVASCULAR COAGULATION [None]
  - HEPATITIS VIRAL [None]
  - PNEUMONIA HERPES VIRAL [None]
  - VARICELLA [None]
